FAERS Safety Report 7589502-7 (Version None)
Quarter: 2011Q3

REPORT INFORMATION
  Report Type: 
  Country: None (occurrence: None)
  Receive Date: 20110705
  Receipt Date: 20110628
  Transmission Date: 20111222
  Serious: Yes (Disabling)
  Sender: FDA-Public Use
  Company Number: AR-JNJFOC-20110606348

PATIENT
  Sex: Female

DRUGS (1)
  1. TOPIRAMATE [Suspect]
     Indication: MIGRAINE PROPHYLAXIS
     Route: 048
     Dates: start: 20110603

REACTIONS (5)
  - VOMITING [None]
  - ABDOMINAL PAIN [None]
  - VISUAL IMPAIRMENT [None]
  - TREMOR [None]
  - HEADACHE [None]
